FAERS Safety Report 4752244-7 (Version None)
Quarter: 2005Q3

REPORT INFORMATION
  Report Type: 
  Country: None (occurrence: None)
  Receive Date: 20050825
  Receipt Date: 20050714
  Transmission Date: 20060218
  Serious: No
  Sender: FDA-Public Use
  Company Number: US-GLAXOSMITHKLINE-A0566234A

PATIENT
  Age: 76 Year
  Sex: Female

DRUGS (9)
  1. LOTRONEX [Suspect]
     Indication: IRRITABLE BOWEL SYNDROME
     Dosage: 1MG TWICE PER DAY
     Route: 048
     Dates: start: 20050711, end: 20050714
  2. FOLIC ACID [Concomitant]
  3. DIGESTIVE ENZYMES [Concomitant]
  4. CALCIUM GLUCONATE [Concomitant]
  5. MOBIC [Concomitant]
  6. MULTIVITAMIN [Concomitant]
  7. PROTONIX [Concomitant]
  8. DOXEPIN HCL [Concomitant]
  9. CLONAZEPAM [Concomitant]

REACTIONS (3)
  - ABDOMINAL PAIN UPPER [None]
  - DIARRHOEA [None]
  - FLATULENCE [None]
